FAERS Safety Report 22279874 (Version 3)
Quarter: 2023Q2

REPORT INFORMATION
  Report Type: Report from Study
  Country: NO (occurrence: NO)
  Receive Date: 20230503
  Receipt Date: 20230612
  Transmission Date: 20230721
  Serious: Yes (Hospitalization)
  Sender: FDA-Public Use
  Company Number: NO-002147023-NVSC2023NO099728

PATIENT
  Age: 54 Year
  Sex: Female

DRUGS (20)
  1. PIQRAY [Suspect]
     Active Substance: ALPELISIB
     Indication: Gallbladder cancer
     Dosage: 300 MG
     Route: 048
     Dates: start: 20230324, end: 20230420
  2. PIQRAY [Suspect]
     Active Substance: ALPELISIB
     Dosage: 250 MG
     Route: 048
     Dates: start: 20230421, end: 20230518
  3. ELIQUIS [Concomitant]
     Active Substance: APIXABAN
     Indication: Thrombosis
     Dosage: 5 MG
     Route: 065
     Dates: start: 202205
  4. CHOLECALCIFEROL [Concomitant]
     Active Substance: CHOLECALCIFEROL
     Indication: Vitamin D deficiency
     Dosage: 8000 OTHER
     Route: 065
     Dates: start: 202303
  5. MORPHINE [Concomitant]
     Active Substance: MORPHINE
     Indication: Pain
     Dosage: 10 MG
     Route: 065
     Dates: start: 202208, end: 202209
  6. MORPHINE [Concomitant]
     Active Substance: MORPHINE
     Dosage: 30 MG
     Route: 065
     Dates: start: 20220907, end: 202211
  7. MORPHINE [Concomitant]
     Active Substance: MORPHINE
     Dosage: 40 MG
     Route: 065
     Dates: start: 202211, end: 20230311
  8. MORPHINE SULFATE [Concomitant]
     Active Substance: MORPHINE SULFATE
     Indication: Pain
     Dosage: 60 MG
     Route: 065
     Dates: start: 20230311, end: 20230512
  9. MORPHINE SULFATE [Concomitant]
     Active Substance: MORPHINE SULFATE
     Dosage: 80 MG
     Route: 065
     Dates: start: 20230512
  10. CREON [Concomitant]
     Active Substance: PANCRELIPASE AMYLASE\PANCRELIPASE LIPASE\PANCRELIPASE PROTEASE
     Indication: Dyspepsia
     Dosage: 10000 OTHER
     Route: 065
     Dates: start: 2015
  11. ASCORBIC ACID\VITAMIN B COMPLEX [Concomitant]
     Active Substance: ASCORBIC ACID\VITAMIN B COMPLEX
     Indication: Vitamin B complex deficiency
     Dosage: 2 OTHER
     Route: 065
     Dates: start: 20230427, end: 20230429
  12. SODIUM PHOSPHATE, MONOBASIC, ANHYDROUS [Concomitant]
     Active Substance: SODIUM PHOSPHATE, MONOBASIC, ANHYDROUS
     Indication: Blood phosphorus decreased
     Dosage: 500 MG
     Route: 065
     Dates: start: 20230428
  13. NALOXEGOL OXALATE [Concomitant]
     Active Substance: NALOXEGOL OXALATE
     Indication: Constipation
     Dosage: 25 MG
     Route: 065
     Dates: start: 2022
  14. METOCLOPRAMIDE HYDROCHLORIDE [Concomitant]
     Active Substance: METOCLOPRAMIDE HYDROCHLORIDE
     Indication: Nausea
     Dosage: 10 MG
     Route: 065
     Dates: start: 2015
  15. SODIUM PICOSULFATE [Concomitant]
     Active Substance: SODIUM PICOSULFATE
     Indication: Constipation
     Dosage: 10 OTHER
     Route: 065
     Dates: start: 2021
  16. MOVICOL [Concomitant]
     Active Substance: POLYETHYLENE GLYCOL 3350\POTASSIUM CHLORIDE\SODIUM BICARBONATE\SODIUM CHLORIDE
     Indication: Constipation
     Dosage: 1 OTHER
     Route: 065
     Dates: start: 202203
  17. ACETAMINOPHEN [Concomitant]
     Active Substance: ACETAMINOPHEN
     Indication: Pain
     Dosage: 1 G
     Route: 065
     Dates: start: 202212
  18. MORFIN [Concomitant]
     Indication: Pain
     Dosage: 5 MG
     Route: 065
     Dates: start: 20220714, end: 20220904
  19. MORFIN [Concomitant]
     Dosage: 10 MG
     Route: 065
     Dates: start: 20220905, end: 20230310
  20. MORFIN [Concomitant]
     Dosage: 20 MG
     Route: 065
     Dates: start: 20230310

REACTIONS (3)
  - Fatigue [Recovered/Resolved]
  - Weight decreased [Recovered/Resolved]
  - Hyperglycaemia [Recovered/Resolved]

NARRATIVE: CASE EVENT DATE: 20230331
